FAERS Safety Report 11257959 (Version 1)
Quarter: 2015Q3

REPORT INFORMATION
  Report Type: Spontaneous
  Country: NO (occurrence: NO)
  Receive Date: 20150710
  Receipt Date: 20150710
  Transmission Date: 20151125
  Serious: Yes (Hospitalization, Other)
  Sender: FDA-Public Use
  Company Number: NO-BRISTOL-MYERS SQUIBB COMPANY-BMS-2015-043308

PATIENT
  Age: 68 Year
  Sex: Female

DRUGS (1)
  1. IPILIMUMAB [Suspect]
     Active Substance: IPILIMUMAB
     Indication: METASTATIC MALIGNANT MELANOMA
     Dosage: 246 MG, UNK
     Route: 042
     Dates: start: 2015

REACTIONS (5)
  - Diarrhoea [Recovering/Resolving]
  - Colitis [Recovering/Resolving]
  - Syncope [Recovering/Resolving]
  - Gastrointestinal haemorrhage [Recovering/Resolving]
  - Abdominal pain upper [Recovering/Resolving]

NARRATIVE: CASE EVENT DATE: 20150524
